FAERS Safety Report 5999967-X (Version None)
Quarter: 2008Q4

REPORT INFORMATION
  Report Type: 
  Country: None (occurrence: None)
  Receive Date: 20081215
  Receipt Date: 20081204
  Transmission Date: 20090506
  Serious: Yes (Other)
  Sender: FDA-Public Use
  Company Number: PHHY2008CL30796

PATIENT
  Age: 68 Year
  Sex: Female

DRUGS (4)
  1. TAREG D [Suspect]
     Indication: HYPERTENSION
     Dosage: 2 TABLETS (160/25 MG) PER DAY
     Dates: start: 20010101
  2. ALPRAZOLAM [Concomitant]
  3. TRAMADOL HCL [Concomitant]
  4. NEXIUM [Concomitant]

REACTIONS (2)
  - BREAST CANCER [None]
  - BREAST OPERATION [None]
